FAERS Safety Report 7013588-1 (Version None)
Quarter: 2010Q3

REPORT INFORMATION
  Report Type: 
  Country: None (occurrence: None)
  Receive Date: 20100924
  Receipt Date: 20100914
  Transmission Date: 20110219
  Serious: Yes (Hospitalization)
  Sender: FDA-Public Use
  Company Number: GXKR2010HR10420

PATIENT
  Age: 34 Year
  Sex: Female

DRUGS (1)
  1. THIAMAZOLE (NGX) [Suspect]
     Indication: HYPERTHYROIDISM
     Route: 065

REACTIONS (8)
  - APHASIA [None]
  - DYSPHONIA [None]
  - DYSPNOEA [None]
  - FATIGUE [None]
  - HYPOVENTILATION [None]
  - MUSCULAR WEAKNESS [None]
  - MYASTHENIC SYNDROME [None]
  - PLASMAPHERESIS [None]
